FAERS Safety Report 22239009 (Version 1)
Quarter: 2023Q2

REPORT INFORMATION
  Report Type: Spontaneous
  Country: US (occurrence: None)
  Receive Date: 20230419
  Receipt Date: 20230419
  Transmission Date: 20230722
  Serious: No
  Sender: FDA-Public Use
  Company Number: None

PATIENT
  Age: 42 Year
  Sex: Female
  Weight: 87.54 kg

DRUGS (5)
  1. IBRANCE [Suspect]
     Active Substance: PALBOCICLIB
     Indication: Breast cancer female
     Dosage: OTHER FREQUENCY : 21DON7DOFF;?
     Route: 048
  2. CALCIUM [Concomitant]
  3. FASLODEX [Concomitant]
     Active Substance: FULVESTRANT
  4. LOPERAMIDE [Concomitant]
  5. METOPROLOL [Concomitant]

REACTIONS (1)
  - White blood cell count decreased [None]
